FAERS Safety Report 10469478 (Version 3)
Quarter: 2014Q4

REPORT INFORMATION
  Report Type: Spontaneous
  Country: US (occurrence: None)
  Receive Date: 20140919
  Receipt Date: 20141110
  Transmission Date: 20150528
  Serious: Yes (Hospitalization, Other)
  Sender: FDA-Public Use
  Company Number: 2014-US-011570

PATIENT
  Age: 8 Year
  Sex: Male

DRUGS (1)
  1. XYREM [Suspect]
     Active Substance: SODIUM OXYBATE
     Indication: NARCOLEPSY
     Route: 048
     Dates: start: 201408, end: 201408

REACTIONS (5)
  - Seizure [None]
  - Off label use [None]
  - Vomiting [None]
  - Dyspnoea [None]
  - Hypopnoea [None]

NARRATIVE: CASE EVENT DATE: 20140906
